FAERS Safety Report 12665875 (Version 1)
Quarter: 2016Q3

REPORT INFORMATION
  Report Type: Spontaneous
  Country: US (occurrence: US)
  Receive Date: 20160818
  Receipt Date: 20160818
  Transmission Date: 20161109
  Serious: No
  Sender: FDA-Public Use
  Company Number: US-ENDO PHARMACEUTICALS INC.-2016-000697

PATIENT
  Sex: Female
  Weight: 67.19 kg

DRUGS (1)
  1. METFORMIN HYDROCHLORIDE TABLETS 500MG [Suspect]
     Active Substance: METFORMIN HYDROCHLORIDE
     Indication: DIABETES MELLITUS MANAGEMENT
     Route: 065

REACTIONS (1)
  - Drug effect decreased [Unknown]
